FAERS Safety Report 6092219-1 (Version None)
Quarter: 2009Q1

REPORT INFORMATION
  Report Type: 
  Country: None (occurrence: None)
  Receive Date: 20090225
  Receipt Date: 20090219
  Transmission Date: 20090719
  Serious: Yes (Hospitalization, Congenital Anomaly)
  Sender: FDA-Public Use
  Company Number: A0662859A

PATIENT
  Sex: Male
  Weight: 3 kg

DRUGS (9)
  1. PAXIL [Suspect]
     Indication: DRUG USE FOR UNKNOWN INDICATION
     Dosage: 40MG PER DAY
     Dates: start: 19970101, end: 20050101
  2. PAXIL CR [Suspect]
     Indication: BIPOLAR DISORDER
     Dosage: 50MG PER DAY
     Dates: start: 20010101
  3. IRON [Concomitant]
  4. DEPAKOTE [Concomitant]
  5. RITALIN [Concomitant]
  6. KLONOPIN [Concomitant]
  7. VISTARIL [Concomitant]
  8. WELLBUTRIN [Concomitant]
  9. VITAMIN AND MINERAL PRENATAL SUPPLEMENT W/ FOLIC ACID CAP [Concomitant]
     Dates: start: 20010502

REACTIONS (8)
  - ATRIAL SEPTAL DEFECT [None]
  - CARDIAC MURMUR [None]
  - CRANIOSYNOSTOSIS [None]
  - DRUG EXPOSURE DURING PREGNANCY [None]
  - HYPOTELORISM OF ORBIT [None]
  - PLAGIOCEPHALY [None]
  - PULMONARY ARTERY STENOSIS CONGENITAL [None]
  - TORTICOLLIS [None]
